FAERS Safety Report 25763531 (Version 1)
Quarter: 2025Q3

REPORT INFORMATION
  Report Type: Spontaneous
  Country: US (occurrence: US)
  Receive Date: 20250905
  Receipt Date: 20250905
  Transmission Date: 20251021
  Serious: No
  Sender: DOMPE FARMACEUTICI
  Company Number: US-FARMAPROD-202410-3631

PATIENT
  Sex: Female

DRUGS (2)
  1. OXERVATE [Suspect]
     Active Substance: CENEGERMIN-BKBJ
     Indication: Neurotrophic keratopathy
     Route: 047
     Dates: start: 20240911
  2. RESTASIS [Concomitant]
     Active Substance: CYCLOSPORINE

REACTIONS (9)
  - Rash [Recovered/Resolved]
  - Eye pain [Unknown]
  - Vision blurred [Unknown]
  - Headache [Recovered/Resolved]
  - Blood creatinine decreased [Unknown]
  - Blood chloride decreased [Unknown]
  - Haemoglobin increased [Unknown]
  - Blood bilirubin increased [Unknown]
  - Dysgeusia [Unknown]
